FAERS Safety Report 24823890 (Version 1)
Quarter: 2025Q1

REPORT INFORMATION
  Report Type: Spontaneous
  Country: JP (occurrence: JP)
  Receive Date: 20250109
  Receipt Date: 20250109
  Transmission Date: 20250408
  Serious: No
  Sender: ALKEM
  Company Number: JP-ALKEM LABORATORIES LIMITED-JP-ALKEM-2024-11709

PATIENT
  Age: 46 Year
  Sex: Male
  Weight: 70.7 kg

DRUGS (2)
  1. DEFERASIROX [Suspect]
     Active Substance: DEFERASIROX
     Indication: Iron overload
     Route: 065
  2. DEFERASIROX [Suspect]
     Active Substance: DEFERASIROX
     Route: 065

REACTIONS (1)
  - Treatment noncompliance [Unknown]
